FAERS Safety Report 9559507 (Version 1)
Quarter: 2013Q3

REPORT INFORMATION
  Report Type: Spontaneous
  Country: US (occurrence: None)
  Receive Date: 20130925
  Receipt Date: 20130925
  Transmission Date: 20140515
  Serious: Yes (Other)
  Sender: FDA-Public Use
  Company Number: A1042241A

PATIENT
  Age: 71 Year
  Sex: Female

DRUGS (1)
  1. SODIUM FLUORIDE TOOTHPASTE (SODIUM FLUORIDE) [Suspect]
     Indication: DENTAL CARE
     Dosage: UNK/UNK/DENTAL

REACTIONS (7)
  - Sjogren^s syndrome [None]
  - Condition aggravated [None]
  - Glossodynia [None]
  - Glossitis [None]
  - Product quality issue [None]
  - Product odour abnormal [None]
  - Product formulation issue [None]
